FAERS Safety Report 9314303 (Version 1)
Quarter: 2013Q2

REPORT INFORMATION
  Report Type: Spontaneous
  Country: GB (occurrence: None)
  Receive Date: 20130522
  Receipt Date: 20130522
  Transmission Date: 20140414
  Serious: Yes (Other)
  Sender: FDA-Public Use
  Company Number: 2013AP005216

PATIENT
  Age: 67 Year
  Sex: Female

DRUGS (4)
  1. ALENDRONIC ACID (ALENDRONIC ACID) [Suspect]
     Indication: OSTEOPOROSIS PROPHYLAXIS
     Route: 048
     Dates: start: 20040227
  2. HUMIRA [Suspect]
     Indication: RHEUMATOID ARTHRITIS
     Route: 058
     Dates: start: 20110314, end: 20120703
  3. LANSOPRAZOLE (LANSOPRAZOLE) [Concomitant]
  4. PARACETAMOL (PARACETAMOL) [Concomitant]

REACTIONS (3)
  - Glossitis [None]
  - Eosinophilia [None]
  - Squamous cell carcinoma of the tongue [None]
